FAERS Safety Report 6724415-1 (Version None)
Quarter: 2010Q2

REPORT INFORMATION
  Report Type: 
  Country: None (occurrence: None)
  Receive Date: 20100513
  Receipt Date: 20100505
  Transmission Date: 20101027
  Serious: Yes (Other)
  Sender: FDA-Public Use
  Company Number: TW-PFIZER INC-2010056788

PATIENT
  Age: 59 Year
  Sex: Male

DRUGS (2)
  1. DOXAZOSIN MESILATE [Suspect]
     Indication: BENIGN PROSTATIC HYPERPLASIA
     Dosage: 4 MG, 1X/DAY
     Dates: start: 20100501, end: 20100502
  2. DIOVAN [Suspect]
     Indication: HYPERTENSION
     Dosage: QD

REACTIONS (2)
  - ILL-DEFINED DISORDER [None]
  - OEDEMA [None]
